FAERS Safety Report 7324164-5 (Version None)
Quarter: 2011Q1

REPORT INFORMATION
  Report Type: 
  Country: None (occurrence: None)
  Receive Date: 20110301
  Receipt Date: 20110218
  Transmission Date: 20110831
  Serious: Yes (Hospitalization)
  Sender: FDA-Public Use
  Company Number: CA-JNJFOC-20100507132

PATIENT
  Sex: Male
  Weight: 91 kg

DRUGS (7)
  1. CRESTOR [Concomitant]
     Route: 048
  2. LANTUS [Concomitant]
     Indication: DIABETES MELLITUS
     Dosage: 16 U AT BEDTIME
  3. NOVORAPID [Concomitant]
     Indication: DIABETES MELLITUS
     Dosage: 6U AM, 4U LUNCH, 6U SUPPER
  4. RAMIPRIL [Concomitant]
     Route: 048
  5. PREDNISONE [Concomitant]
  6. REMICADE [Suspect]
     Indication: COLITIS ULCERATIVE
     Route: 042
  7. CALCIUM [Concomitant]
     Route: 048

REACTIONS (3)
  - GASTROINTESTINAL DISORDER [None]
  - DRUG INEFFECTIVE [None]
  - COLECTOMY [None]
